FAERS Safety Report 21637764 (Version 2)
Quarter: 2023Q1

REPORT INFORMATION
  Report Type: Report from Study
  Country: US (occurrence: US)
  Receive Date: 20221124
  Receipt Date: 20230124
  Transmission Date: 20230417
  Serious: Yes (Other)
  Sender: FDA-Public Use
  Company Number: US-ABBVIE-4212254

PATIENT
  Age: 70 Year
  Sex: Female

DRUGS (3)
  1. HUMIRA [Suspect]
     Active Substance: ADALIMUMAB
     Indication: Rheumatoid arthritis
     Route: 058
     Dates: start: 20220325
  2. HUMIRA [Suspect]
     Active Substance: ADALIMUMAB
     Route: 058
  3. METOPROLOL [Suspect]
     Active Substance: METOPROLOL
     Indication: Hypotension
     Route: 065

REACTIONS (6)
  - Eye operation [Recovering/Resolving]
  - Dizziness [Recovering/Resolving]
  - Chills [Not Recovered/Not Resolved]
  - Headache [Recovering/Resolving]
  - Hypotension [Recovering/Resolving]
  - Cardiac disorder [Not Recovered/Not Resolved]

NARRATIVE: CASE EVENT DATE: 20221201
